FAERS Safety Report 6538916-2 (Version None)
Quarter: 2010Q1

REPORT INFORMATION
  Report Type: 
  Country: None (occurrence: None)
  Receive Date: 20100112
  Receipt Date: 20091230
  Transmission Date: 20100710
  Serious: Yes (Other)
  Sender: FDA-Public Use
  Company Number: 2008AL001102

PATIENT
  Sex: Female

DRUGS (2)
  1. SPIRONOLACTONE [Suspect]
  2. ACTINOMYCIN D [Concomitant]

REACTIONS (1)
  - BLOOD PRESSURE INADEQUATELY CONTROLLED [None]
